FAERS Safety Report 14175143 (Version 1)
Quarter: 2017Q4

REPORT INFORMATION
  Report Type: Spontaneous
  Country: DE (occurrence: DE)
  Receive Date: 20171109
  Receipt Date: 20171109
  Transmission Date: 20180321
  Serious: Yes (Death)
  Sender: FDA-Public Use
  Company Number: DE-B.I. PHARMACEUTICALS,INC./RIDGEFIELD-2017-BI-060024

PATIENT
  Sex: Female

DRUGS (3)
  1. GILOTRIF [Suspect]
     Active Substance: AFATINIB
     Indication: EGFR GENE MUTATION
     Route: 065
  2. GILOTRIF [Suspect]
     Active Substance: AFATINIB
     Indication: ADENOCARCINOMA
     Route: 065
     Dates: start: 201601
  3. GILOTRIF [Suspect]
     Active Substance: AFATINIB
     Route: 065
     Dates: end: 201701

REACTIONS (5)
  - Rash [Unknown]
  - Fatigue [Unknown]
  - Death [Fatal]
  - Sleep disorder [Unknown]
  - Depression [Unknown]
